FAERS Safety Report 19894490 (Version 2)
Quarter: 2021Q4

REPORT INFORMATION
  Report Type: Report from Study
  Country: US (occurrence: US)
  Receive Date: 20210928
  Receipt Date: 20211109
  Transmission Date: 20220303
  Serious: Yes (Death, Hospitalization)
  Sender: FDA-Public Use
  Company Number: US-RADIUS HEALTH INC.-2021US004196

PATIENT
  Age: 75 Year
  Sex: Female

DRUGS (4)
  1. TYMLOS [Suspect]
     Active Substance: ABALOPARATIDE
     Indication: Osteoporosis
     Dosage: 80 MICROGRAM, QD
     Route: 058
     Dates: start: 20210913, end: 20210918
  2. VITAMIN D NOS [Concomitant]
     Active Substance: VITAMIN D NOS
     Indication: Bone disorder
     Dosage: UNK
  3. ZOLOFT [Concomitant]
     Active Substance: SERTRALINE HYDROCHLORIDE
     Indication: Product used for unknown indication
     Dosage: UNK
  4. DIHYDROERGOCRISTINE\LOMIFYLLINE [Concomitant]
     Active Substance: DIHYDROERGOCRISTINE\LOMIFYLLINE
     Indication: Product used for unknown indication
     Dosage: UNK

REACTIONS (1)
  - Generalised tonic-clonic seizure [Fatal]

NARRATIVE: CASE EVENT DATE: 20210918
